FAERS Safety Report 5385393-3 (Version None)
Quarter: 2007Q3

REPORT INFORMATION
  Report Type: 
  Country: None (occurrence: None)
  Receive Date: 20070709
  Receipt Date: 20070623
  Transmission Date: 20080115
  Serious: Yes (Hospitalization)
  Sender: FDA-Public Use
  Company Number: FSC_00135_2007

PATIENT
  Sex: Female
  Weight: 70 kg

DRUGS (3)
  1. ISOPTIN (ISOPTIN) 120 MG [Suspect]
     Dosage: 120 MG, 15 TABLETS, ONCE ORAL
     Route: 048
     Dates: start: 20070622, end: 20070622
  2. ALCOHOL  /00002101 / (ALCOHOLIC FOOD) [Suspect]
     Dosage: ORAL
     Route: 048
     Dates: start: 20070622, end: 20070622
  3. CITALOPRAM (CITALOPRAM) 60 MG [Suspect]
     Dosage: 60 MG, 10 TABLETS, ONCE ORAL
     Route: 048
     Dates: start: 20070622, end: 20070622

REACTIONS (4)
  - INCORRECT DOSE ADMINISTERED [None]
  - SOMNOLENCE [None]
  - SUICIDE ATTEMPT [None]
  - TACHYCARDIA [None]
